FAERS Safety Report 7283637-4 (Version None)
Quarter: 2011Q1

REPORT INFORMATION
  Report Type: 
  Country: None (occurrence: None)
  Receive Date: 20110209
  Receipt Date: 20110204
  Transmission Date: 20110831
  Serious: Yes (Hospitalization)
  Sender: FDA-Public Use
  Company Number: B0698623A

PATIENT
  Age: 25 Year
  Sex: Female
  Weight: 65 kg

DRUGS (1)
  1. WELLBUTRIN [Suspect]
     Route: 048
     Dates: start: 20101210, end: 20101221

REACTIONS (5)
  - ORAL DISORDER [None]
  - SWELLING FACE [None]
  - TOXIC SKIN ERUPTION [None]
  - EOSINOPHILIA [None]
  - C-REACTIVE PROTEIN INCREASED [None]
